FAERS Safety Report 19095068 (Version 1)
Quarter: 2021Q2

REPORT INFORMATION
  Report Type: Other
  Country: DE (occurrence: DE)
  Receive Date: 20210405
  Receipt Date: 20210405
  Transmission Date: 20210717
  Serious: Yes (Other)
  Sender: FDA-Public Use
  Company Number: DE-CELLTRION INC.-2020DE018389

PATIENT

DRUGS (74)
  1. DOXIL [Suspect]
     Active Substance: DOXORUBICIN HYDROCHLORIDE
     Dosage: 88 MG, UNK
     Route: 041
     Dates: start: 20181120, end: 20181120
  2. DOXIL [Suspect]
     Active Substance: DOXORUBICIN HYDROCHLORIDE
     Dosage: 88 MG, UNK
     Route: 041
     Dates: start: 20181204, end: 20181204
  3. DOXIL [Suspect]
     Active Substance: DOXORUBICIN HYDROCHLORIDE
     Dosage: 88 MG, UNK
     Route: 041
     Dates: start: 20181218, end: 20181218
  4. RITUXIMAB (UNKNOWN) [Suspect]
     Active Substance: RITUXIMAB
     Dosage: 663 MG, UNK
     Route: 041
     Dates: start: 20181204, end: 20181204
  5. RITUXIMAB (UNKNOWN) [Suspect]
     Active Substance: RITUXIMAB
     Dosage: 663 MG, UNK
     Route: 041
     Dates: start: 20181218, end: 20181218
  6. RITUXIMAB (UNKNOWN) [Suspect]
     Active Substance: RITUXIMAB
     Dosage: 664 MG, UNK
     Route: 041
     Dates: start: 20190102, end: 20190102
  7. RITUXIMAB (UNKNOWN) [Suspect]
     Active Substance: RITUXIMAB
     Dosage: 664 MG, UNK
     Route: 041
     Dates: start: 20190116, end: 20190116
  8. RITUXIMAB (UNKNOWN) [Suspect]
     Active Substance: RITUXIMAB
     Dosage: 664 MG, UNK
     Route: 041
     Dates: start: 20190213
  9. PREDNISONE. [Suspect]
     Active Substance: PREDNISONE
     Dosage: 500 MG, UNK
     Route: 048
     Dates: start: 20190116, end: 20190120
  10. PREDNISONE. [Suspect]
     Active Substance: PREDNISONE
     Dosage: 100 MG, UNK
     Route: 048
     Dates: start: 20190130, end: 20190130
  11. PREDNISONE. [Suspect]
     Active Substance: PREDNISONE
     Dosage: 500 MG, UNK
     Route: 048
     Dates: start: 20191002, end: 20191006
  12. PREDNISONE. [Suspect]
     Active Substance: PREDNISONE
     Dosage: 100 MG, UNK
     Route: 048
     Dates: start: 20191130, end: 20191130
  13. ENDOXAN 1 G [Suspect]
     Active Substance: CYCLOPHOSPHAMIDE
     Indication: DIFFUSE LARGE B-CELL LYMPHOMA
     Dosage: 1300 MG, UNK
     Route: 041
     Dates: start: 20181107, end: 20181107
  14. ENDOXAN 1 G [Suspect]
     Active Substance: CYCLOPHOSPHAMIDE
     Dosage: 1327 MG, UNK
     Route: 041
     Dates: start: 20181120, end: 20181120
  15. ACICLOVIR [Concomitant]
     Active Substance: ACYCLOVIR
     Indication: PROPHYLAXIS
     Dosage: 400 MG, UNK
     Route: 048
     Dates: start: 20181115
  16. RITUXIMAB (UNKNOWN) [Suspect]
     Active Substance: RITUXIMAB
     Dosage: 664 MG, UNK
     Route: 041
     Dates: start: 20181106, end: 20181106
  17. RITUXIMAB (UNKNOWN) [Suspect]
     Active Substance: RITUXIMAB
     Dosage: 663 MG, UNK
     Route: 041
     Dates: start: 20181204, end: 20181204
  18. RITUXIMAB (UNKNOWN) [Suspect]
     Active Substance: RITUXIMAB
     Dosage: 663 MG, UNK
     Route: 041
     Dates: start: 20181218, end: 20181218
  19. RITUXIMAB (UNKNOWN) [Suspect]
     Active Substance: RITUXIMAB
     Dosage: 664 MG, UNK
     Route: 041
     Dates: start: 20190213
  20. RITUXIMAB (UNKNOWN) [Suspect]
     Active Substance: RITUXIMAB
     Dosage: 664 MG, UNK
     Route: 041
     Dates: start: 20190213
  21. PREDNISONE. [Suspect]
     Active Substance: PREDNISONE
     Dosage: 500 MG, UNK
     Route: 048
     Dates: start: 20181204, end: 20181208
  22. PREDNISONE. [Suspect]
     Active Substance: PREDNISONE
     Dosage: 500 MG, UNK
     Route: 048
     Dates: start: 20181218, end: 20181222
  23. PREDNISONE. [Suspect]
     Active Substance: PREDNISONE
     Dosage: 500 MG, UNK
     Route: 048
     Dates: start: 20190102, end: 20190106
  24. VINCRISTINE [Suspect]
     Active Substance: VINCRISTINE
     Dosage: 2 MG, UNK
     Route: 041
     Dates: start: 20190102, end: 20190102
  25. ENDOXAN 1 G [Suspect]
     Active Substance: CYCLOPHOSPHAMIDE
     Dosage: 1327 MG, UNK
     Route: 041
     Dates: start: 20181204, end: 20181204
  26. CIPROFLOXACIN. [Concomitant]
     Active Substance: CIPROFLOXACIN
     Indication: PROPHYLAXIS
     Dosage: 500 MG, UNK
     Route: 048
     Dates: start: 20181115, end: 20190127
  27. RITUXIMAB (UNKNOWN) [Suspect]
     Active Substance: RITUXIMAB
     Dosage: 664 MG, UNK
     Route: 041
     Dates: start: 20181106, end: 20181106
  28. RITUXIMAB (UNKNOWN) [Suspect]
     Active Substance: RITUXIMAB
     Dosage: 663 MG, UNK
     Route: 041
     Dates: start: 20181120, end: 20181120
  29. RITUXIMAB (UNKNOWN) [Suspect]
     Active Substance: RITUXIMAB
     Dosage: 664 MG, UNK
     Route: 041
     Dates: start: 20190116, end: 20190116
  30. VINCRISTINE [Suspect]
     Active Substance: VINCRISTINE
     Dosage: 2 MG, UNK
     Route: 041
     Dates: start: 20181218, end: 20181218
  31. ENDOXAN 1 G [Suspect]
     Active Substance: CYCLOPHOSPHAMIDE
     Dosage: 1327 MG, UNK
     Route: 041
     Dates: start: 20190116, end: 20190116
  32. UROMITEXAN [Concomitant]
     Active Substance: MESNA
     Indication: PROPHYLAXIS
     Dosage: UNK
     Route: 048
     Dates: start: 20181107, end: 20190116
  33. RITUXIMAB (UNKNOWN) [Suspect]
     Active Substance: RITUXIMAB
     Dosage: 663 MG, UNK
     Route: 041
     Dates: start: 20181120, end: 20181120
  34. RITUXIMAB (UNKNOWN) [Suspect]
     Active Substance: RITUXIMAB
     Dosage: 663 MG, UNK
     Route: 041
     Dates: start: 20181204, end: 20181204
  35. RITUXIMAB (UNKNOWN) [Suspect]
     Active Substance: RITUXIMAB
     Dosage: 663 MG, UNK
     Route: 041
     Dates: start: 20181204, end: 20181204
  36. RITUXIMAB (UNKNOWN) [Suspect]
     Active Substance: RITUXIMAB
     Dosage: 663 MG, UNK
     Route: 041
     Dates: start: 20181218, end: 20181218
  37. RITUXIMAB (UNKNOWN) [Suspect]
     Active Substance: RITUXIMAB
     Dosage: 664 MG, UNK
     Route: 041
     Dates: start: 20190102, end: 20190102
  38. RITUXIMAB (UNKNOWN) [Suspect]
     Active Substance: RITUXIMAB
     Dosage: 664 MG, UNK
     Route: 041
     Dates: start: 20190102, end: 20190102
  39. DOXIL [Suspect]
     Active Substance: DOXORUBICIN HYDROCHLORIDE
     Dosage: 88 MG, UNK
     Route: 041
     Dates: start: 20190102, end: 20190102
  40. COTRIM [Concomitant]
     Active Substance: SULFAMETHOXAZOLE\TRIMETHOPRIM
     Indication: PROPHYLAXIS
     Dosage: UNK
     Route: 048
     Dates: start: 20181106
  41. RITUXIMAB (UNKNOWN) [Suspect]
     Active Substance: RITUXIMAB
     Dosage: 664 MG, UNK
     Route: 041
     Dates: start: 20190102, end: 20190102
  42. RITUXIMAB (UNKNOWN) [Suspect]
     Active Substance: RITUXIMAB
     Dosage: 664 MG, UNK
     Route: 041
     Dates: start: 20190116, end: 20190116
  43. VINCRISTINE [Suspect]
     Active Substance: VINCRISTINE
     Dosage: 2 MG, UNK
     Route: 041
     Dates: start: 20181120, end: 20181120
  44. VINCRISTINE [Suspect]
     Active Substance: VINCRISTINE
     Dosage: 2 MG, UNK
     Route: 041
     Dates: start: 20181204, end: 20181204
  45. ENDOXAN 1 G [Suspect]
     Active Substance: CYCLOPHOSPHAMIDE
     Dosage: 1327 MG, UNK
     Route: 041
     Dates: start: 20190102, end: 20190102
  46. MESNA. [Concomitant]
     Active Substance: MESNA
     Indication: PROPHYLAXIS
     Dosage: 400 MG, UNK
     Route: 042
     Dates: start: 20181106
  47. NEULASTA [Concomitant]
     Active Substance: PEGFILGRASTIM
     Indication: PRODUCT USED FOR UNKNOWN INDICATION
     Dosage: 6 MG, FS
     Route: 058
     Dates: start: 20181108, end: 20190117
  48. ONDANSETRON [Concomitant]
     Active Substance: ONDANSETRON
     Indication: PROPHYLAXIS
     Dosage: UNK
     Route: 042
     Dates: start: 20181107, end: 20181107
  49. TAVEGIL [Concomitant]
     Active Substance: CLEMASTINE FUMARATE
     Indication: PROPHYLAXIS
     Dosage: UNK
     Route: 042
     Dates: start: 20181106, end: 20190213
  50. PALONOSETRON. [Concomitant]
     Active Substance: PALONOSETRON HYDROCHLORIDE
     Indication: PROPHYLAXIS
     Dosage: 50 MG, UNK
     Route: 042
     Dates: start: 20181120
  51. RITUXIMAB (UNKNOWN) [Suspect]
     Active Substance: RITUXIMAB
     Dosage: 664 MG, UNK
     Route: 041
     Dates: start: 20181106, end: 20181106
  52. RITUXIMAB (UNKNOWN) [Suspect]
     Active Substance: RITUXIMAB
     Dosage: 664 MG, UNK
     Route: 041
     Dates: start: 20181106, end: 20181106
  53. RITUXIMAB (UNKNOWN) [Suspect]
     Active Substance: RITUXIMAB
     Dosage: 663 MG, UNK
     Route: 041
     Dates: start: 20181120, end: 20181120
  54. RITUXIMAB (UNKNOWN) [Suspect]
     Active Substance: RITUXIMAB
     Dosage: 663 MG, UNK
     Route: 041
     Dates: start: 20181218, end: 20181218
  55. RITUXIMAB (UNKNOWN) [Suspect]
     Active Substance: RITUXIMAB
     Dosage: 664 MG, UNK
     Route: 041
     Dates: start: 20190116, end: 20190116
  56. RITUXIMAB (UNKNOWN) [Suspect]
     Active Substance: RITUXIMAB
     Dosage: 664 MG, UNK
     Route: 041
     Dates: start: 20190116, end: 20190116
  57. RITUXIMAB (UNKNOWN) [Suspect]
     Active Substance: RITUXIMAB
     Dosage: 664 MG, UNK
     Route: 041
     Dates: start: 20190213
  58. DOXIL [Suspect]
     Active Substance: DOXORUBICIN HYDROCHLORIDE
     Indication: DIFFUSE LARGE B-CELL LYMPHOMA
     Dosage: 88.5 MG, UNK
     Route: 041
     Dates: start: 20181107, end: 20181107
  59. DOXIL [Suspect]
     Active Substance: DOXORUBICIN HYDROCHLORIDE
     Dosage: 88 MG, UNK
     Route: 041
     Dates: start: 20190116, end: 20190116
  60. CIPROFLOXACIN. [Concomitant]
     Active Substance: CIPROFLOXACIN
     Dosage: 500 MG, UNK
     Route: 048
     Dates: start: 20191115, end: 20191127
  61. PARACETAMOL [Concomitant]
     Active Substance: ACETAMINOPHEN
     Indication: PROPHYLAXIS
     Dosage: 1000 MG, UNK
     Route: 048
     Dates: start: 20181106, end: 20190213
  62. RITUXIMAB (UNKNOWN) [Suspect]
     Active Substance: RITUXIMAB
     Indication: DIFFUSE LARGE B-CELL LYMPHOMA
     Dosage: 664 MG, UNK
     Route: 041
     Dates: start: 20181106, end: 20181106
  63. RITUXIMAB (UNKNOWN) [Suspect]
     Active Substance: RITUXIMAB
     Dosage: 663 MG, UNK
     Route: 041
     Dates: start: 20181120, end: 20181120
  64. RITUXIMAB (UNKNOWN) [Suspect]
     Active Substance: RITUXIMAB
     Dosage: 663 MG, UNK
     Route: 041
     Dates: start: 20181120, end: 20181120
  65. RITUXIMAB (UNKNOWN) [Suspect]
     Active Substance: RITUXIMAB
     Dosage: 663 MG, UNK
     Route: 041
     Dates: start: 20181218, end: 20181218
  66. RITUXIMAB (UNKNOWN) [Suspect]
     Active Substance: RITUXIMAB
     Dosage: 664 MG, UNK
     Route: 041
     Dates: start: 20190102, end: 20190102
  67. RITUXIMAB (UNKNOWN) [Suspect]
     Active Substance: RITUXIMAB
     Dosage: 664 MG, UNK
     Route: 041
     Dates: start: 20190213
  68. VINCRISTINE [Suspect]
     Active Substance: VINCRISTINE
     Indication: DIFFUSE LARGE B-CELL LYMPHOMA
     Dosage: 2 MG, UNK
     Route: 041
     Dates: start: 20181107, end: 20181107
  69. VINCRISTINE [Suspect]
     Active Substance: VINCRISTINE
     Dosage: 2 MG, UNK
     Route: 041
     Dates: start: 20190116, end: 20190116
  70. ENDOXAN 1 G [Suspect]
     Active Substance: CYCLOPHOSPHAMIDE
     Dosage: 1327 MG, UNK
     Route: 041
     Dates: start: 20181218, end: 20181218
  71. PREDNISOLONE. [Concomitant]
     Active Substance: PREDNISOLONE
     Indication: PRODUCT USED FOR UNKNOWN INDICATION
     Dosage: 50 MG, UNK
     Route: 048
     Dates: start: 20181106, end: 20190213
  72. RITUXIMAB (UNKNOWN) [Suspect]
     Active Substance: RITUXIMAB
     Dosage: 663 MG, UNK
     Route: 041
     Dates: start: 20181204, end: 20181204
  73. PREDNISONE. [Suspect]
     Active Substance: PREDNISONE
     Indication: DIFFUSE LARGE B-CELL LYMPHOMA
     Dosage: 900 MG, UNK
     Route: 048
     Dates: start: 20181103, end: 20181111
  74. PREDNISONE. [Suspect]
     Active Substance: PREDNISONE
     Dosage: 500 MG, UNK
     Route: 048
     Dates: start: 20181120, end: 20181124

REACTIONS (8)
  - Paraesthesia [Recovered/Resolved]
  - Leukocytosis [Recovered/Resolved]
  - Alopecia [Recovered/Resolved]
  - Nausea [Not Recovered/Not Resolved]
  - Neutrophilia [Recovered/Resolved]
  - Anaemia [Recovered/Resolved]
  - Peripheral sensory neuropathy [Recovered/Resolved]
  - Hypersensitivity [Recovered/Resolved]

NARRATIVE: CASE EVENT DATE: 20181120
